FAERS Safety Report 5272016-7 (Version None)
Quarter: 2007Q1

REPORT INFORMATION
  Report Type: 
  Country: None (occurrence: None)
  Receive Date: 20070315
  Receipt Date: 20070302
  Transmission Date: 20070707
  Serious: Yes (Other)
  Sender: FDA-Public Use
  Company Number: 2007RR-06161

PATIENT
  Sex: Male

DRUGS (4)
  1. PAROXETINE HCL [Suspect]
     Indication: DEPRESSION
     Dosage: 20 MG, QD
     Dates: start: 20021101
  2. ALCOHOL(ALCOHOL) [Suspect]
  3. CODEINE PHOSPHATE (CODEINE) UNKNOWN [Suspect]
  4. ACETAMINOPHEN [Suspect]

REACTIONS (5)
  - ALCOHOL USE [None]
  - DRUG WITHDRAWAL SYNDROME [None]
  - MULTIPLE DRUG OVERDOSE INTENTIONAL [None]
  - SELF-INJURIOUS IDEATION [None]
  - SUICIDE ATTEMPT [None]
